FAERS Safety Report 6267181-9 (Version None)
Quarter: 2009Q3

REPORT INFORMATION
  Report Type: 
  Country: None (occurrence: None)
  Receive Date: 20090714
  Receipt Date: 20090707
  Transmission Date: 20100115
  Serious: Yes (Other)
  Sender: FDA-Public Use
  Company Number: BR-JNJFOC-20090702684

PATIENT
  Age: 24 Year
  Sex: Female
  Weight: 60 kg

DRUGS (3)
  1. TYLEX [Suspect]
     Indication: PROCEDURAL PAIN
     Dosage: ACETAMINOPHEN 500 MG /CODEINE PHOSPHATE 30 MG
     Route: 065
  2. AMOXILLIN [Concomitant]
     Indication: INFLAMMATION
  3. NIMESULIDE [Concomitant]

REACTIONS (2)
  - ASTHENIA [None]
  - VOMITING [None]
